FAERS Safety Report 16012669 (Version 1)
Quarter: 2019Q1

REPORT INFORMATION
  Report Type: Spontaneous
  Country: MY (occurrence: MY)
  Receive Date: 20190227
  Receipt Date: 20190227
  Transmission Date: 20190418
  Serious: Yes (Other)
  Sender: FDA-Public Use
  Company Number: MY-FRESENIUS KABI-FK201902053

PATIENT
  Age: 54 Year
  Sex: Female

DRUGS (1)
  1. OXALIPLATIN 5MG/ML POWDER FOR SOLUTION FOR INFUSION [Suspect]
     Active Substance: OXALIPLATIN
     Indication: RECTOSIGMOID CANCER
     Route: 042

REACTIONS (1)
  - Anaphylactic shock [Recovering/Resolving]
